FAERS Safety Report 12722849 (Version 1)
Quarter: 2016Q3

REPORT INFORMATION
  Report Type: Spontaneous
  Country: US (occurrence: US)
  Receive Date: 20160907
  Receipt Date: 20160907
  Transmission Date: 20161109
  Serious: Yes (Other)
  Sender: FDA-Public Use
  Company Number: US-TEVA-690653USA

PATIENT
  Sex: Female

DRUGS (1)
  1. TRAZODONE [Suspect]
     Active Substance: TRAZODONE HYDROCHLORIDE
     Indication: INSOMNIA
     Dosage: AT NIGHT
     Route: 065

REACTIONS (6)
  - Dyspnoea [Recovered/Resolved]
  - Nasal congestion [Unknown]
  - Pharyngeal oedema [Unknown]
  - Nasal oedema [Unknown]
  - Dysphagia [Unknown]
  - Condition aggravated [Unknown]
